FAERS Safety Report 7561095-X (Version None)
Quarter: 2011Q2

REPORT INFORMATION
  Report Type: 
  Country: None (occurrence: None)
  Receive Date: 20110621
  Receipt Date: 20110615
  Transmission Date: 20111010
  Serious: Yes (Other)
  Sender: FDA-Public Use
  Company Number: NL-PFIZER INC-2011131159

PATIENT
  Age: 52 Year
  Sex: Female

DRUGS (2)
  1. VARENICLINE TARTRATE [Suspect]
     Dosage: UNK
     Dates: start: 20110503, end: 20110101
  2. HYDROCHLOROTHIAZIDE [Concomitant]
     Dosage: 12.5 MG, 1X/DAY

REACTIONS (6)
  - NAUSEA [None]
  - VISION BLURRED [None]
  - BLOOD PRESSURE INCREASED [None]
  - CONJUNCTIVAL HAEMORRHAGE [None]
  - DRY MOUTH [None]
  - DECREASED APPETITE [None]
